FAERS Safety Report 15999052 (Version 1)
Quarter: 2019Q1

REPORT INFORMATION
  Report Type: Spontaneous
  Country: US (occurrence: US)
  Receive Date: 20190225
  Receipt Date: 20190225
  Transmission Date: 20190418
  Serious: Yes (Other)
  Sender: FDA-Public Use
  Company Number: US-JNJFOC-20190208022

PATIENT
  Sex: Male

DRUGS (7)
  1. ABILIFY [Concomitant]
     Active Substance: ARIPIPRAZOLE
     Indication: BREAST ENLARGEMENT
     Dosage: TITRATED 5 MG TO 10 MG THEN 15 MG
     Route: 065
     Dates: end: 201810
  2. ABILIFY [Concomitant]
     Active Substance: ARIPIPRAZOLE
     Indication: ERECTILE DYSFUNCTION
     Dosage: TITRATED 5 MG TO 10 MG THEN 15 MG
     Route: 065
     Dates: end: 201810
  3. ARISTADA [Concomitant]
     Active Substance: ARIPIPRAZOLE LAUROXIL
     Indication: BREAST ENLARGEMENT
     Dosage: TITRATED 5 MG TO 10 MG THEN 15 MG
     Route: 065
     Dates: start: 20181120, end: 201811
  4. INVEGA TRINZA [Suspect]
     Active Substance: PALIPERIDONE PALMITATE
     Indication: SCHIZOAFFECTIVE DISORDER DEPRESSIVE TYPE
     Route: 030
     Dates: start: 20180913
  5. ARISTADA [Concomitant]
     Active Substance: ARIPIPRAZOLE LAUROXIL
     Indication: LIBIDO DECREASED
     Dosage: TITRATED 5 MG TO 10 MG THEN 15 MG
     Route: 065
     Dates: start: 20181120, end: 201811
  6. ARISTADA [Concomitant]
     Active Substance: ARIPIPRAZOLE LAUROXIL
     Indication: ERECTILE DYSFUNCTION
     Dosage: TITRATED 5 MG TO 10 MG THEN 15 MG
     Route: 065
     Dates: start: 20181120, end: 201811
  7. ABILIFY [Concomitant]
     Active Substance: ARIPIPRAZOLE
     Indication: LIBIDO DECREASED
     Dosage: TITRATED 5 MG TO 10 MG THEN 15 MG
     Route: 065
     Dates: end: 201810

REACTIONS (3)
  - Off label use [Unknown]
  - Psychotic symptom [Unknown]
  - Product use in unapproved indication [Unknown]

NARRATIVE: CASE EVENT DATE: 20180913
